FAERS Safety Report 7196810-0 (Version None)
Quarter: 2010Q4

REPORT INFORMATION
  Report Type: 
  Country: None (occurrence: None)
  Receive Date: 20101223
  Receipt Date: 20101102
  Transmission Date: 20110411
  Serious: No
  Sender: FDA-Public Use
  Company Number: US-AMGEN-KDL441109

PATIENT

DRUGS (6)
  1. ENBREL [Suspect]
     Indication: RHEUMATOID ARTHRITIS
     Dosage: 50 MG, QWK
     Route: 058
     Dates: start: 20070801
  2. LIORESAL [Concomitant]
     Dosage: 10 MG, QHS
     Route: 048
     Dates: start: 20101009
  3. LISINOPRIL [Concomitant]
     Dosage: 40 MG, QD
     Route: 048
  4. ZOCOR [Concomitant]
     Dosage: 20 MG, QD
     Route: 048
  5. HYDROCHLOROTHIAZIDE [Concomitant]
     Dosage: 25 MG, QD
     Route: 048
  6. VERAPAMIL [Concomitant]
     Dosage: 240 MG, UNK
     Route: 048

REACTIONS (4)
  - BACK PAIN [None]
  - HYPOAESTHESIA [None]
  - PAIN IN EXTREMITY [None]
  - SENSORY DISTURBANCE [None]
